FAERS Safety Report 8762046 (Version 2)
Quarter: 2012Q4

REPORT INFORMATION
  Report Type: 
  Country: DK (occurrence: DK)
  Receive Date: 20120829
  Receipt Date: 20121030
  Transmission Date: 20130627
  Serious: Yes (Other)
  Sender: FDA-Public Use
  Company Number: DK-PFIZER INC-2012209447

PATIENT
  Age: 17 Year
  Sex: Male

DRUGS (3)
  1. SERTRALINE HCL [Suspect]
     Indication: SOCIAL PHOBIA
     Dosage: 25 mg, UNK
     Dates: start: 201205
  2. SERTRALINE HCL [Suspect]
     Dosage: 50 mg, UNK
  3. SERTRALINE HCL [Suspect]
     Dosage: 100 mg, UNK

REACTIONS (3)
  - Syncope [Unknown]
  - Vomiting [Unknown]
  - Bulimia nervosa [Unknown]
